FAERS Safety Report 7574985-9 (Version None)
Quarter: 2011Q2

REPORT INFORMATION
  Report Type: 
  Country: None (occurrence: None)
  Receive Date: 20110627
  Receipt Date: 20110619
  Transmission Date: 20111010
  Serious: Yes (Other)
  Sender: FDA-Public Use
  Company Number: US-PFIZER INC-2011134810

PATIENT
  Sex: Female
  Weight: 82.993 kg

DRUGS (1)
  1. TOVIAZ [Suspect]
     Indication: INCONTINENCE
     Dosage: 4 MG, DAILY
     Route: 048
     Dates: start: 20110617

REACTIONS (9)
  - PRURITUS [None]
  - PALPITATIONS [None]
  - ORAL PRURITUS [None]
  - DRY EYE [None]
  - HYPOAESTHESIA ORAL [None]
  - FEELING ABNORMAL [None]
  - NASAL DISCOMFORT [None]
  - ERYTHEMA [None]
  - NASAL DRYNESS [None]
